FAERS Safety Report 8943431 (Version 2)
Quarter: 2012Q4

REPORT INFORMATION
  Report Type: 
  Country: US (occurrence: US)
  Receive Date: 20121204
  Receipt Date: 20121226
  Transmission Date: 20130627
  Serious: No
  Sender: FDA-Public Use
  Company Number: US-PFIZER INC-2012303753

PATIENT
  Age: 75 Year
  Sex: Female
  Weight: 96.15 kg

DRUGS (4)
  1. GABAPENTIN [Suspect]
     Indication: LOW BACK PAIN
     Dosage: UNK, 3x/day
     Dates: start: 20121129
  2. GABAPENTIN [Suspect]
     Indication: KNEE PAIN
  3. QUINAPRIL [Concomitant]
     Indication: BLOOD PRESSURE HIGH
     Dosage: UNK
  4. ALPRAZOLAM [Concomitant]
     Indication: NERVOUS SYSTEM DISORDER
     Dosage: UNK
     Route: 048
     Dates: start: 2010

REACTIONS (3)
  - Pain [Unknown]
  - Malaise [Unknown]
  - Drug intolerance [Unknown]
